FAERS Safety Report 14626891 (Version 2)
Quarter: 2018Q2

REPORT INFORMATION
  Report Type: Spontaneous
  Country: FR (occurrence: FR)
  Receive Date: 20180312
  Receipt Date: 20180503
  Transmission Date: 20180711
  Serious: Yes (Hospitalization, Other)
  Sender: FDA-Public Use
  Company Number: PHHY2018FR039894

PATIENT
  Sex: Female

DRUGS (11)
  1. PREDNISONE. [Interacting]
     Active Substance: PREDNISONE
     Dosage: 350 MG, UNK
     Route: 048
     Dates: start: 20171220
  2. VINCRISTINE [Interacting]
     Active Substance: VINCRISTINE
     Dosage: 1 MG, UNK
     Route: 042
     Dates: start: 20180112
  3. METHOTREXATE. [Suspect]
     Active Substance: METHOTREXATE
     Indication: ACUTE LYMPHOCYTIC LEUKAEMIA
     Dosage: 12 MG, UNK
     Route: 037
     Dates: start: 20171214
  4. VINCRISTINE [Interacting]
     Active Substance: VINCRISTINE
     Indication: ACUTE LYMPHOCYTIC LEUKAEMIA
     Dosage: 1.15 MG, UNK
     Route: 042
  5. PEGASPARGASE [Suspect]
     Active Substance: PEGASPARGASE
     Dosage: 875 IU, UNK
     Route: 042
     Dates: start: 20180109
  6. VINCRISTINE [Interacting]
     Active Substance: VINCRISTINE
     Dosage: 1 MG, UNK
     Route: 042
     Dates: start: 20171229
  7. DEXAMETHASONE. [Suspect]
     Active Substance: DEXAMETHASONE
     Dosage: 84 MG, UNK
     Route: 048
     Dates: start: 20180111
  8. PEGASPARGASE [Suspect]
     Active Substance: PEGASPARGASE
     Indication: ACUTE LYMPHOCYTIC LEUKAEMIA
     Dosage: 875 IU, UNK
     Route: 042
     Dates: start: 20171226
  9. METHOTREXATE. [Suspect]
     Active Substance: METHOTREXATE
     Dosage: 12 MG, UNK
     Route: 037
     Dates: start: 20180108
  10. PREDNISONE. [Interacting]
     Active Substance: PREDNISONE
     Indication: ACUTE LYMPHOCYTIC LEUKAEMIA
     Dosage: 350 MG, UNK
     Route: 048
     Dates: start: 20171214
  11. DEXAMETHASONE. [Suspect]
     Active Substance: DEXAMETHASONE
     Indication: ACUTE LYMPHOCYTIC LEUKAEMIA
     Dosage: 84 MG, UNK
     Route: 048
     Dates: start: 20171221

REACTIONS (3)
  - Seizure [Recovering/Resolving]
  - Potentiating drug interaction [Recovering/Resolving]
  - Cerebral venous thrombosis [Recovering/Resolving]

NARRATIVE: CASE EVENT DATE: 20180120
